FAERS Safety Report 19989894 (Version 1)
Quarter: 2021Q4

REPORT INFORMATION
  Report Type: Spontaneous
  Country: IR (occurrence: IR)
  Receive Date: 20211025
  Receipt Date: 20211025
  Transmission Date: 20220303
  Serious: Yes (Hospitalization)
  Sender: FDA-Public Use
  Company Number: IR-ABBVIE-21K-080-4131667-00

PATIENT
  Age: 36 Year
  Sex: Male
  Weight: 45 kg

DRUGS (2)
  1. VALPROATE SODIUM [Suspect]
     Active Substance: VALPROATE SODIUM
     Indication: Conversion disorder
     Route: 048
     Dates: start: 20190524, end: 20190601
  2. PHENOBARBITAL [Concomitant]
     Active Substance: PHENOBARBITAL
     Indication: Product used for unknown indication
     Route: 048
     Dates: start: 20190524

REACTIONS (9)
  - Balance disorder [Recovered/Resolved]
  - Hypoaesthesia [Not Recovered/Not Resolved]
  - Dysphagia [Recovered/Resolved]
  - Altered state of consciousness [Recovered/Resolved]
  - Respiratory rate decreased [Recovered/Resolved]
  - Salivary hypersecretion [Recovered/Resolved]
  - Toxicity to various agents [Unknown]
  - Product use in unapproved indication [Unknown]
  - Tremor [Recovered/Resolved]

NARRATIVE: CASE EVENT DATE: 20190524
